FAERS Safety Report 10874074 (Version 1)
Quarter: 2015Q1

REPORT INFORMATION
  Report Type: Spontaneous
  Country: US (occurrence: None)
  Receive Date: 20150223
  Receipt Date: 20150223
  Transmission Date: 20150721
  Serious: Yes (Hospitalization)
  Sender: FDA-Public Use
  Company Number: None

PATIENT
  Age: 51 Year
  Sex: Female
  Weight: 55 kg

DRUGS (1)
  1. BUPROPION [Suspect]
     Active Substance: BUPROPION
     Indication: BIPOLAR DISORDER
     Route: 048
     Dates: start: 20140808, end: 20141213

REACTIONS (5)
  - Fluid retention [None]
  - Self injurious behaviour [None]
  - Psychomotor hyperactivity [None]
  - Aggression [None]
  - Insomnia [None]

NARRATIVE: CASE EVENT DATE: 20141213
